FAERS Safety Report 6445007-8 (Version None)
Quarter: 2009Q4

REPORT INFORMATION
  Report Type: 
  Country: None (occurrence: None)
  Receive Date: 20091116
  Receipt Date: 20091116
  Transmission Date: 20100525
  Serious: Yes (Other)
  Sender: FDA-Public Use
  Company Number: None

PATIENT
  Sex: Male
  Weight: 90.7194 kg

DRUGS (2)
  1. WALGREENS EAR WAX REMOVAL DROPS CARBAMIDE PAROXIDE 6.5% WALGREENS [Suspect]
     Indication: CERUMEN IMPACTION
     Dosage: 5 DROPS ONCE OTIC
     Route: 001
     Dates: start: 20091107, end: 20091107
  2. -CIPRODEX OTIC- [Concomitant]

REACTIONS (3)
  - APPLICATION SITE PAIN [None]
  - APPLICATION SITE SWELLING [None]
  - CAUSTIC INJURY [None]
